FAERS Safety Report 16207504 (Version 2)
Quarter: 2019Q2

REPORT INFORMATION
  Report Type: Spontaneous
  Country: US (occurrence: US)
  Receive Date: 20190417
  Receipt Date: 20190423
  Transmission Date: 20190711
  Serious: Yes (Other)
  Sender: FDA-Public Use
  Company Number: US-PFIZER INC-2019158148

PATIENT
  Age: 28 Year
  Sex: Male

DRUGS (2)
  1. XANAX [Suspect]
     Active Substance: ALPRAZOLAM
     Dosage: UNK (60 XANAX PILLS)
  2. MARIJUANA [Suspect]
     Active Substance: CANNABIS SATIVA SUBSP. INDICA TOP
     Dosage: UNK

REACTIONS (2)
  - Overdose [Unknown]
  - Aggression [Unknown]
